FAERS Safety Report 8266870-4 (Version None)
Quarter: 2012Q2

REPORT INFORMATION
  Report Type: 
  Country: None (occurrence: None)
  Receive Date: 20120409
  Receipt Date: 20120330
  Transmission Date: 20120825
  Serious: No
  Sender: FDA-Public Use
  Company Number: US-BIOGENIDEC-2012BI011705

PATIENT
  Age: 41 Year
  Sex: Male

DRUGS (4)
  1. TYSABRI [Suspect]
     Indication: MULTIPLE SCLEROSIS
     Route: 042
     Dates: start: 20120105, end: 20120330
  2. BENADRYL [Concomitant]
     Indication: PREMEDICATION
  3. FAMOTIDINE [Concomitant]
     Indication: PREMEDICATION
  4. DEXAMETHASONE [Concomitant]
     Indication: PREMEDICATION

REACTIONS (2)
  - PRURITUS GENERALISED [None]
  - URTICARIA [None]
